FAERS Safety Report 8618868-1 (Version None)
Quarter: 2012Q3

REPORT INFORMATION
  Report Type: 
  Country: None (occurrence: None)
  Receive Date: 20120824
  Receipt Date: 20120820
  Transmission Date: 20120928
  Serious: Yes (Other)
  Sender: FDA-Public Use
  Company Number: US-PFIZER INC-2012204851

PATIENT
  Sex: Female

DRUGS (1)
  1. LIPITOR [Suspect]
     Indication: BLOOD CHOLESTEROL INCREASED
     Dosage: UNK
     Route: 048

REACTIONS (9)
  - KIDNEY INFECTION [None]
  - URINARY TRACT INFECTION [None]
  - RENAL DISORDER [None]
  - BLOOD PRESSURE ABNORMAL [None]
  - JAUNDICE [None]
  - MUSCULAR WEAKNESS [None]
  - ARTHROPATHY [None]
  - INSOMNIA [None]
  - LIVER INJURY [None]
